FAERS Safety Report 5635778-2 (Version None)
Quarter: 2008Q1

REPORT INFORMATION
  Report Type: 
  Country: None (occurrence: None)
  Receive Date: 20080221
  Receipt Date: 20080212
  Transmission Date: 20080703
  Serious: Yes (Other)
  Sender: FDA-Public Use
  Company Number: 035-20785-08020712

PATIENT
  Age: 50 Year
  Sex: Male

DRUGS (4)
  1. THALOMID [Suspect]
     Indication: MULTIPLE MYELOMA
     Dosage: 100 MG, DAILY ALL THROUGH THE COURSE, ORAL; 100 MG, DAILY ALL THROUGH THE COURSE; ORAL
     Route: 048
     Dates: start: 20050929
  2. BORTEZOMIB (BORTEZOMIB) [Suspect]
     Indication: MULTIPLE MYELOMA
     Dosage: 1.3 MG/M2 ON DAYS 1 AND 4, 1.45 MG/M2 ON DAY 8, 1.3MG/M2, DAY 1, 4, 8 AND 11
     Dates: start: 20050928
  3. DOXORUBICIN HCL [Suspect]
     Indication: MULTIPLE MYELOMA
     Dosage: 10 MG, DAILY FOR DAY 1 THROUGH DAY 4;
     Dates: start: 20050928
  4. METHYLPREDNISOLONE [Suspect]
     Indication: MULTIPLE MYELOMA
     Dosage: 240 MG, DAILY ON DAYS 1-4 AND DAY 9-12

REACTIONS (12)
  - APATHY [None]
  - DIABETES MELLITUS [None]
  - DRUG INEFFECTIVE [None]
  - DRUG RESISTANCE [None]
  - DYSKINESIA [None]
  - EXTENSOR PLANTAR RESPONSE [None]
  - GAZE PALSY [None]
  - HEMIPLEGIA [None]
  - HYPOREFLEXIA [None]
  - MOTOR DYSFUNCTION [None]
  - MUSCULAR WEAKNESS [None]
  - PERIPHERAL SENSORY NEUROPATHY [None]
